FAERS Safety Report 9587278 (Version 1)
Quarter: 2013Q4

REPORT INFORMATION
  Report Type: Spontaneous
  Country: US (occurrence: None)
  Receive Date: 20131003
  Receipt Date: 20131003
  Transmission Date: 20140711
  Serious: No
  Sender: FDA-Public Use
  Company Number: None

PATIENT
  Age: 68 Year
  Sex: Male

DRUGS (3)
  1. LIPITOR [Suspect]
     Indication: BLOOD CHOLESTEROL INCREASED
     Dosage: 1 PER DAY ONCE DAILY TAKEN BY MOUTH
     Route: 048
  2. LIPITOR [Suspect]
     Indication: HYPERTENSION
     Dosage: 1 PER DAY ONCE DAILY TAKEN BY MOUTH
     Route: 048
  3. TOPROL [Suspect]
     Indication: HYPERTENSION
     Route: 048

REACTIONS (2)
  - Product dosage form confusion [None]
  - Circumstance or information capable of leading to medication error [None]
